FAERS Safety Report 11640767 (Version 1)
Quarter: 2015Q4

REPORT INFORMATION
  Report Type: Report from Study
  Country: US (occurrence: US)
  Receive Date: 20151019
  Receipt Date: 20151019
  Transmission Date: 20160304
  Serious: Yes (Hospitalization)
  Sender: FDA-Public Use
  Company Number: US-PURDUE PHARMA-USA-2015-0126771

PATIENT
  Age: 37 Year
  Sex: Female

DRUGS (2)
  1. OXYCONTIN [Suspect]
     Active Substance: OXYCODONE HYDROCHLORIDE
     Dosage: UNK
     Route: 048
     Dates: start: 201409
  2. OXYCONTIN [Suspect]
     Active Substance: OXYCODONE HYDROCHLORIDE
     Indication: INTERVERTEBRAL DISC DISORDER
     Dosage: 40 MG, Q12H
     Route: 048
     Dates: start: 201509

REACTIONS (1)
  - Thoracotomy [Recovered/Resolved]

NARRATIVE: CASE EVENT DATE: 20150812
